FAERS Safety Report 4764899-1 (Version None)
Quarter: 2005Q3

REPORT INFORMATION
  Report Type: 
  Country: None (occurrence: None)
  Receive Date: 20050906
  Receipt Date: 20050822
  Transmission Date: 20060218
  Serious: Yes (Hospitalization, Other)
  Sender: FDA-Public Use
  Company Number: HQWYE041122AUG05

PATIENT
  Age: 4 Year
  Sex: Male

DRUGS (6)
  1. CHILDREN'S ADVIL [Suspect]
     Indication: EAR INFECTION
     Dosage: ORAL
     Route: 048
     Dates: start: 20050718, end: 20050727
  2. CHILDREN'S ADVIL [Suspect]
     Indication: PYREXIA
     Dosage: ORAL
     Route: 048
     Dates: start: 20050718, end: 20050727
  3. PREDNISOLONE [Suspect]
     Indication: EAR INFECTION
     Dates: start: 20050720, end: 20050727
  4. CEFPODOXIME PROXETIL [Concomitant]
  5. BIAFINE (CETYL PALMITATE/ETHYLENE GLYCOL MONOSTEARATE/PARAFFIN/PARAFFI [Concomitant]
  6. EFFERALGAN (PARACETAMOL) [Concomitant]

REACTIONS (9)
  - CONDITION AGGRAVATED [None]
  - EYE DISORDER [None]
  - IRRITABILITY [None]
  - LUNG DISORDER [None]
  - OTITIS MEDIA [None]
  - PAIN IN EXTREMITY [None]
  - PLATELET COUNT INCREASED [None]
  - PLEURAL EFFUSION [None]
  - PNEUMONIA [None]
